FAERS Safety Report 10058005 (Version 1)
Quarter: 2014Q2

REPORT INFORMATION
  Report Type: Spontaneous
  Country: US (occurrence: None)
  Receive Date: 20140403
  Receipt Date: 20140403
  Transmission Date: 20141212
  Serious: Yes (Hospitalization)
  Sender: FDA-Public Use
  Company Number: None

PATIENT
  Age: 78 Year
  Sex: Female
  Weight: 70 kg

DRUGS (1)
  1. CISPLATIN [Suspect]

REACTIONS (8)
  - Hyponatraemia [None]
  - Hypokalaemia [None]
  - Hypotension [None]
  - Pancytopenia [None]
  - Haemoglobin decreased [None]
  - Culture urine positive [None]
  - Streptococcus test positive [None]
  - Atrial flutter [None]
